FAERS Safety Report 18239301 (Version 2)
Quarter: 2020Q3

REPORT INFORMATION
  Report Type: Spontaneous
  Country: US (occurrence: US)
  Receive Date: 20200907
  Receipt Date: 20200912
  Transmission Date: 20201103
  Serious: No
  Sender: FDA-Public Use
  Company Number: NVSC2020US240628

PATIENT
  Sex: Female

DRUGS (2)
  1. LETROZOLE ^SANDOZ^ [Suspect]
     Active Substance: LETROZOLE
     Indication: PRODUCT USED FOR UNKNOWN INDICATION
     Dosage: UNK
     Route: 065
  2. IBRANCE [Suspect]
     Active Substance: PALBOCICLIB
     Indication: BREAST CANCER
     Dosage: 125 MG, QD
     Route: 048
     Dates: start: 20200814

REACTIONS (3)
  - Fatigue [Unknown]
  - Allergic sinusitis [Unknown]
  - White blood cell count decreased [Unknown]
